FAERS Safety Report 14033208 (Version 1)
Quarter: 2017Q4

REPORT INFORMATION
  Report Type: Spontaneous
  Country: US (occurrence: US)
  Receive Date: 20171002
  Receipt Date: 20171002
  Transmission Date: 20180321
  Serious: No
  Sender: FDA-Public Use
  Company Number: US-GALDERMA-US17001750

PATIENT
  Age: 67 Year
  Sex: Male

DRUGS (6)
  1. AFRIN [Concomitant]
     Active Substance: OXYMETAZOLINE
  2. METFORMIN [Concomitant]
     Active Substance: METFORMIN HYDROCHLORIDE
  3. BRILINTA [Concomitant]
     Active Substance: TICAGRELOR
  4. ASPIRIN. [Concomitant]
     Active Substance: ASPIRIN
  5. CLOBEX [Suspect]
     Active Substance: CLOBETASOL PROPIONATE
     Indication: PSORIASIS
     Route: 061
  6. ALPHA BLOCKER AND BETA BLOCKER [Concomitant]

REACTIONS (1)
  - Wrong drug administered [Recovered/Resolved]
